FAERS Safety Report 16722890 (Version 1)
Quarter: 2019Q3

REPORT INFORMATION
  Report Type: Spontaneous
  Country: US (occurrence: US)
  Receive Date: 20190821
  Receipt Date: 20190821
  Transmission Date: 20191005
  Serious: Yes (Other)
  Sender: FDA-Public Use
  Company Number: US-LUPIN HEALTHCARE (UK) LIMITED-2019-05117

PATIENT
  Age: 5 Month
  Sex: Male
  Weight: 8.62 kg

DRUGS (1)
  1. CEPHALEXIN FOR ORAL SUSPENSION USP 250 MG/5 ML [Suspect]
     Active Substance: CEPHALEXIN
     Indication: URINARY TRACT INFECTION
     Dosage: UNK UNK, BID (250 MG/5 ML)
     Route: 048
     Dates: start: 20190805

REACTIONS (2)
  - Mucous stools [Not Recovered/Not Resolved]
  - Haematochezia [Not Recovered/Not Resolved]

NARRATIVE: CASE EVENT DATE: 20190805
